FAERS Safety Report 6759354-3 (Version None)
Quarter: 2010Q2

REPORT INFORMATION
  Report Type: 
  Country: None (occurrence: None)
  Receive Date: 20100607
  Receipt Date: 20100526
  Transmission Date: 20101027
  Serious: Yes (Hospitalization, Other)
  Sender: FDA-Public Use
  Company Number: CA-ELI_LILLY_AND_COMPANY-CA201005007774

PATIENT
  Age: 44 Year
  Sex: Male

DRUGS (3)
  1. CYMBALTA [Suspect]
     Indication: MAJOR DEPRESSION
     Dosage: 60 MG, UNKNOWN
     Route: 065
     Dates: start: 20101201
  2. CYMBALTA [Suspect]
     Dosage: 60 MG, 5/W
     Route: 065
  3. CYMBALTA [Suspect]
     Dosage: 30 MG, 2/W
     Route: 065

REACTIONS (5)
  - ABDOMINAL DISTENSION [None]
  - DIZZINESS [None]
  - DYSGEUSIA [None]
  - HEPATIC CIRRHOSIS [None]
  - SEXUAL DYSFUNCTION [None]
